FAERS Safety Report 7877607 (Version 3)
Quarter: 2014Q1

REPORT INFORMATION
  Report Type: Spontaneous
  Country: BR (occurrence: None)
  Receive Date: 20110217
  Receipt Date: 20140226
  Transmission Date: 20141002
  Serious: Yes (Other)
  Sender: FDA-Public Use
  Company Number: DSJ-2011-02239

PATIENT
  Age: 7 Decade
  Sex: Female

DRUGS (4)
  1. BENICAR ANLO [Suspect]
     Indication: HYPERTENSION
     Dosage: 20/5 MG (1 IN 1 D), PER ORAL
     Route: 048
     Dates: start: 2008, end: 20110418
  2. ROSUVASTATIN [Suspect]
     Indication: HYPERCHOLESTEROLAEMIA
     Dosage: PER ORAL
     Route: 048
     Dates: start: 2008, end: 2008
  3. EZETIMIBE [Suspect]
     Indication: PRODUCT USED FOR UNKNOWN INDICATION
  4. FLUOXETINE (FLUOXETINE) [Concomitant]

REACTIONS (4)
  - Pain in extremity [None]
  - Cough [None]
  - Cataract operation [None]
  - Pain in extremity [None]
